FAERS Safety Report 12966493 (Version 1)
Quarter: 2016Q4

REPORT INFORMATION
  Report Type: Spontaneous
  Country: US (occurrence: US)
  Receive Date: 20161121
  Receipt Date: 20161121
  Transmission Date: 20170207
  Serious: No
  Sender: FDA-Public Use
  Company Number: None

PATIENT
  Age: 67 Year
  Sex: Female

DRUGS (1)
  1. IBRANCE [Suspect]
     Active Substance: PALBOCICLIB
     Dosage: DAILY DOR 21 DAYS AND THEN 7
     Route: 048
     Dates: start: 20160909

REACTIONS (1)
  - Vomiting [None]

NARRATIVE: CASE EVENT DATE: 20161106
